FAERS Safety Report 4916578-5 (Version None)
Quarter: 2006Q1

REPORT INFORMATION
  Report Type: 
  Country: None (occurrence: None)
  Receive Date: 20060220
  Receipt Date: 20060215
  Transmission Date: 20060701
  Serious: Yes (Hospitalization)
  Sender: FDA-Public Use
  Company Number: US-GLAXOSMITHKLINE-A0593878A

PATIENT

DRUGS (1)
  1. ACYCLOVIR SODIUM [Suspect]
     Indication: ENCEPHALITIS
     Dosage: 10MGK THREE TIMES PER DAY
     Route: 042

REACTIONS (3)
  - NAUSEA [None]
  - VERTIGO [None]
  - VOMITING [None]
